FAERS Safety Report 4976580-4 (Version None)
Quarter: 2006Q2

REPORT INFORMATION
  Report Type: 
  Country: None (occurrence: None)
  Receive Date: 20060419
  Receipt Date: 20051006
  Transmission Date: 20061013
  Serious: Yes (Hospitalization, Disabling, Other)
  Sender: FDA-Public Use
  Company Number: US-MERCK-0510USA05970

PATIENT
  Age: 58 Year
  Sex: Male
  Weight: 119 kg

DRUGS (2)
  1. VIOXX [Suspect]
     Indication: BACK PAIN
     Route: 048
     Dates: start: 20000127, end: 20040801
  2. ASPIRIN [Concomitant]
     Route: 065

REACTIONS (30)
  - ACUTE MYOCARDIAL INFARCTION [None]
  - ANGINA PECTORIS [None]
  - ANGINA UNSTABLE [None]
  - AORTIC VALVE INCOMPETENCE [None]
  - BACK INJURY [None]
  - CARDIAC DISORDER [None]
  - CARDIAC FAILURE [None]
  - CARDIAC MURMUR [None]
  - CAROTID ARTERY STENOSIS [None]
  - CAROTID BRUIT [None]
  - CHEST DISCOMFORT [None]
  - CHEST PAIN [None]
  - CORONARY ARTERY DISEASE [None]
  - CORONARY ARTERY STENOSIS [None]
  - DIABETES MELLITUS [None]
  - DIASTOLIC DYSFUNCTION [None]
  - DIZZINESS [None]
  - DRUG INEFFECTIVE [None]
  - DYSLIPIDAEMIA [None]
  - DYSPNOEA EXERTIONAL [None]
  - ERECTILE DYSFUNCTION [None]
  - GASTROOESOPHAGEAL REFLUX DISEASE [None]
  - HYPERCHOLESTEROLAEMIA [None]
  - HYPERTENSION [None]
  - HYPOKINESIA [None]
  - MENISCUS LESION [None]
  - MYOCARDIAL ISCHAEMIA [None]
  - OEDEMA [None]
  - PAIN IN EXTREMITY [None]
  - RADICULOPATHY [None]
